FAERS Safety Report 13777795 (Version 2)
Quarter: 2017Q4

REPORT INFORMATION
  Report Type: Spontaneous
  Country: US (occurrence: US)
  Receive Date: 20170721
  Receipt Date: 20171016
  Transmission Date: 20180320
  Serious: Yes (Other)
  Sender: FDA-Public Use
  Company Number: US-TEVA-788652USA

PATIENT

DRUGS (1)
  1. CLONAZEPAM. [Suspect]
     Active Substance: CLONAZEPAM
     Indication: POST-TRAUMATIC STRESS DISORDER
     Dosage: TIMES 2
     Route: 065
     Dates: start: 1991, end: 201309

REACTIONS (15)
  - Gait inability [Unknown]
  - Panic disorder [Unknown]
  - Thinking abnormal [Unknown]
  - Bone pain [Unknown]
  - Poor personal hygiene [Unknown]
  - Drug ineffective [Unknown]
  - Depression [Unknown]
  - Drug withdrawal syndrome [Unknown]
  - Hallucination [Unknown]
  - Malaise [Unknown]
  - Anger [Unknown]
  - Alopecia [Unknown]
  - Insomnia [Unknown]
  - Weight decreased [Unknown]
  - Eating disorder [Unknown]
